FAERS Safety Report 14253232 (Version 1)
Quarter: 2017Q4

REPORT INFORMATION
  Report Type: Spontaneous
  Country: AU (occurrence: AU)
  Receive Date: 20171205
  Receipt Date: 20171205
  Transmission Date: 20180321
  Serious: Yes (Life-Threatening, Other)
  Sender: FDA-Public Use
  Company Number: AU-PRINSTON PHARMACEUTICAL INC.-2017PRN00543

PATIENT
  Age: 15 Year
  Sex: Male
  Weight: 70 kg

DRUGS (11)
  1. METHYLENE BLUE. [Suspect]
     Active Substance: METHYLENE BLUE
     Dosage: 1 MG/KG/H X 12 H
  2. RAMIPRIL. [Suspect]
     Active Substance: RAMIPRIL
     Dosage: 100 MG, ONCE
     Route: 048
  3. AMLODIPINE [Suspect]
     Active Substance: AMLODIPINE BESYLATE
     Dosage: 290 MG, ONCE
     Route: 048
  4. VENLAFAXINE [Suspect]
     Active Substance: VENLAFAXINE HYDROCHLORIDE
     Dosage: 1050 MG, ONCE
     Route: 048
  5. LITHIUM. [Suspect]
     Active Substance: LITHIUM
     Route: 048
  6. PROMETHAZINE HYDROCHLORIDE. [Suspect]
     Active Substance: PROMETHAZINE HYDROCHLORIDE
     Dosage: 500 MG, ONCE
     Route: 048
  7. METHYLENE BLUE. [Suspect]
     Active Substance: METHYLENE BLUE
     Indication: OVERDOSE
     Dosage: 1.5 MG/KG
     Route: 065
  8. METHYLENE BLUE. [Suspect]
     Active Substance: METHYLENE BLUE
     Dosage: 1.5 MG/KG/H X 12 HOURS
  9. DESVENLAFAXINE. [Suspect]
     Active Substance: DESVENLAFAXINE
     Dosage: 5.6 G, ONCE
     Route: 048
  10. QUETIAPINE (IMMEDIATE AND EXTENDED RELEASE) [Suspect]
     Active Substance: QUETIAPINE
     Dosage: 13.5 G, ONCE [SLOW RELEASE 1.5 G; IMMEDIATE RELEASE 12 G]
     Route: 048
  11. FLUOXETINE [Suspect]
     Active Substance: FLUOXETINE HYDROCHLORIDE
     Dosage: 560 MG, ONCE
     Route: 048

REACTIONS (5)
  - Serotonin syndrome [Recovered/Resolved]
  - Overdose [Recovered/Resolved]
  - Drug interaction [Recovered/Resolved]
  - Hypovolaemic shock [Recovered/Resolved]
  - Pneumonia [Recovered/Resolved]
